FAERS Safety Report 4300697-0 (Version None)
Quarter: 2004Q1

REPORT INFORMATION
  Report Type: 
  Country: None (occurrence: None)
  Receive Date: 20040219
  Receipt Date: 20040219
  Transmission Date: 20041129
  Serious: Yes (Life-Threatening, Hospitalization)
  Sender: FDA-Public Use
  Company Number: None

PATIENT
  Age: 65 Year
  Sex: Male
  Weight: 84.1 kg

DRUGS (14)
  1. HALOPERIDOL [Suspect]
     Indication: DELIRIUM
     Dosage: 5 MG IV X ONE DOSE
     Route: 042
     Dates: start: 20031013
  2. PROMETHAZINE [Suspect]
     Indication: NAUSEA
     Dosage: 25 MG IV X SEVERAL DOSES
     Route: 042
     Dates: start: 20021007, end: 20030903
  3. ONDANSETRON [Concomitant]
  4. ASPIRIN [Concomitant]
  5. AMLODIPINE [Concomitant]
  6. LISINOPRIL [Concomitant]
  7. ENOXAPARIN SODIUM [Concomitant]
  8. HYDROCHLOROTHIAZIDE [Concomitant]
  9. LABETATOL [Concomitant]
  10. REGULAR INSULIN [Concomitant]
  11. FUROSEMIDE [Concomitant]
  12. ACETAMINOPHEN [Concomitant]
  13. CODEINE [Concomitant]
  14. KCL TAB [Concomitant]

REACTIONS (18)
  - ADRENAL DISORDER [None]
  - ATRIAL FIBRILLATION [None]
  - CONFUSIONAL STATE [None]
  - DELIRIUM [None]
  - DISORIENTATION [None]
  - EXTRAPYRAMIDAL DISORDER [None]
  - HYPERCORTICOIDISM [None]
  - HYPERTONIA [None]
  - MUSCLE CONTRACTIONS INVOLUNTARY [None]
  - MUSCLE RIGIDITY [None]
  - NAUSEA [None]
  - NEOPLASM [None]
  - NEUROLEPTIC MALIGNANT SYNDROME [None]
  - PNEUMONIA ASPIRATION [None]
  - PYREXIA [None]
  - RENAL FAILURE ACUTE [None]
  - RHABDOMYOLYSIS [None]
  - TREMOR [None]
